FAERS Safety Report 5205065-5 (Version None)
Quarter: 2007Q1

REPORT INFORMATION
  Report Type: 
  Country: None (occurrence: None)
  Receive Date: 20070110
  Receipt Date: 20061017
  Transmission Date: 20070707
  Serious: No
  Sender: FDA-Public Use
  Company Number: US-BRISTOL-MYERS SQUIBB COMPANY-13544580

PATIENT
  Age: 6 Decade
  Sex: Female
  Weight: 113 kg

DRUGS (4)
  1. ABILIFY [Suspect]
     Dosage: DOSE WAS TITRATED UP TO 10MG OR 15MG. IT'S BEEN REDUCED BY 5MG
  2. EFFEXOR [Concomitant]
  3. NEURONTIN [Concomitant]
  4. VISTARIL [Concomitant]

REACTIONS (1)
  - TARDIVE DYSKINESIA [None]
